FAERS Safety Report 7799759-5 (Version None)
Quarter: 2011Q4

REPORT INFORMATION
  Report Type: 
  Country: None (occurrence: None)
  Receive Date: 20111004
  Receipt Date: 20110922
  Transmission Date: 20120403
  Serious: Yes (Death, Life-Threatening)
  Sender: FDA-Public Use
  Company Number: 1051998

PATIENT
  Age: 66 Year
  Sex: Female
  Weight: 60 kg

DRUGS (5)
  1. (OXYGEN) [Concomitant]
  2. MAGNESIUM SULFATE [Suspect]
     Indication: VENTRICULAR TACHYCARDIA
     Dosage: 20 G/500 ML, INTRAVENOUS DRIP
     Route: 041
  3. DOPAMINE HCL INJ, USP (DOPAMINE HYDROCHLORIDE) [Suspect]
     Indication: PRODUCT USED FOR UNKNOWN INDICATION
     Dosage: INTRAVENOUS DRIP
     Route: 041
  4. MAGNESIUM SULFATE [Suspect]
     Indication: ACUTE MYOCARDIAL INFARCTION
     Dosage: 20 G/500 ML, INTRAVENOUS DRIP
     Route: 041
  5. AMIODARONE HCL [Suspect]
     Indication: PRODUCT USED FOR UNKNOWN INDICATION
     Dosage: 150 MG, INTRAVENOUS  DRIP
     Route: 041

REACTIONS (2)
  - APNOEA [None]
  - CARDIAC ARREST [None]
